FAERS Safety Report 25335993 (Version 2)
Quarter: 2025Q2

REPORT INFORMATION
  Report Type: Spontaneous
  Country: HR (occurrence: HR)
  Receive Date: 20250520
  Receipt Date: 20250606
  Transmission Date: 20250717
  Serious: Yes (Death, Other)
  Sender: PFIZER
  Company Number: HR-PFIZER INC-PV202500059092

PATIENT
  Age: 43 Year
  Sex: Male

DRUGS (1)
  1. TAFAMIDIS [Suspect]
     Active Substance: TAFAMIDIS
     Dates: start: 2024

REACTIONS (3)
  - Death [Fatal]
  - Liver transplant [Unknown]
  - Heart transplant [Unknown]

NARRATIVE: CASE EVENT DATE: 20240101
